FAERS Safety Report 23125356 (Version 1)
Quarter: 2023Q4

REPORT INFORMATION
  Report Type: Spontaneous
  Country: None (occurrence: US)
  Receive Date: 20231030
  Receipt Date: 20231030
  Transmission Date: 20240110
  Serious: No
  Sender: FDA-Public Use
  Company Number: US-Changzhou Pharmaceutical Factory-2147580

PATIENT
  Age: 70 Year
  Sex: Male

DRUGS (4)
  1. ROSUVASTATIN CALCIUM [Suspect]
     Active Substance: ROSUVASTATIN CALCIUM
     Indication: Blood cholesterol increased
     Route: 065
  2. LUPRON [Concomitant]
     Active Substance: LEUPROLIDE ACETATE
     Route: 065
     Dates: start: 2018
  3. ENZALUTAMIDE [Concomitant]
     Active Substance: ENZALUTAMIDE
     Route: 048
  4. 50+ Multivitamin [Concomitant]
     Route: 065

REACTIONS (1)
  - Somnolence [Recovered/Resolved]
